FAERS Safety Report 6026943-3 (Version None)
Quarter: 2009Q1

REPORT INFORMATION
  Report Type: 
  Country: None (occurrence: None)
  Receive Date: 20090105
  Receipt Date: 20081229
  Transmission Date: 20090719
  Serious: Yes (Hospitalization)
  Sender: FDA-Public Use
  Company Number: US-ASTRAZENECA-2008UW28841

PATIENT
  Age: 58 Year
  Sex: Male

DRUGS (11)
  1. SEROQUEL [Suspect]
     Indication: DEPRESSION
     Route: 048
     Dates: start: 20071229
  2. LACTULOSE [Concomitant]
  3. INSULIN [Concomitant]
  4. DEXTROSE [Concomitant]
  5. LIBRIUM [Concomitant]
  6. CLONIDINE [Concomitant]
  7. ASPIRIN [Concomitant]
  8. M.V.I. [Concomitant]
  9. FOLIC ACID [Concomitant]
  10. THIAMINE HCL [Concomitant]
  11. ZETIA [Concomitant]

REACTIONS (2)
  - FALL [None]
  - HEPATIC ENCEPHALOPATHY [None]
